FAERS Safety Report 9361094 (Version 2)
Quarter: 2013Q3

REPORT INFORMATION
  Report Type: Report from Study
  Country: CO (occurrence: CO)
  Receive Date: 20130621
  Receipt Date: 20130826
  Transmission Date: 20140515
  Serious: Yes (Hospitalization)
  Sender: FDA-Public Use
  Company Number: PHHY2013CO060646

PATIENT
  Age: 1 Year
  Sex: Male
  Weight: 14 kg

DRUGS (2)
  1. AFINITOR [Suspect]
     Indication: TUBEROUS SCLEROSIS
  2. VIGABATRIN [Concomitant]
     Indication: CONVULSION
     Dosage: 500 MG, UNK
     Dates: start: 20120313

REACTIONS (2)
  - Intracranial aneurysm [Recovered/Resolved]
  - Convulsion [Recovered/Resolved]
